FAERS Safety Report 9886501 (Version 1)
Quarter: 2014Q1

REPORT INFORMATION
  Report Type: Report from Study
  Country: BR (occurrence: BR)
  Receive Date: 20140210
  Receipt Date: 20140210
  Transmission Date: 20141002
  Serious: Yes (Hospitalization)
  Sender: FDA-Public Use
  Company Number: PHHY2014BR015680

PATIENT
  Sex: Female
  Weight: 58 kg

DRUGS (4)
  1. ACLASTA [Suspect]
     Indication: OSTEOPOROSIS
     Dosage: 5 MG, UNK
     Route: 042
     Dates: start: 2013
  2. ARAVA [Concomitant]
     Indication: RHEUMATIC DISORDER
     Dosage: UNK UKN, UNK
     Dates: start: 2004
  3. VIMOVO [Concomitant]
     Indication: RHEUMATIC DISORDER
     Dosage: UNK UKN, UNK
     Dates: start: 2004
  4. PREDNISOLON [Concomitant]
     Indication: RHEUMATIC DISORDER
     Dosage: UNK UKN, UNK
     Dates: start: 1970

REACTIONS (3)
  - General physical health deterioration [Unknown]
  - Cystitis noninfective [Recovering/Resolving]
  - Gastrointestinal inflammation [Recovering/Resolving]
